FAERS Safety Report 5635943-4 (Version None)
Quarter: 2008Q1

REPORT INFORMATION
  Report Type: 
  Country: None (occurrence: None)
  Receive Date: 20080224
  Receipt Date: 20080213
  Transmission Date: 20080703
  Serious: Yes (Other)
  Sender: FDA-Public Use
  Company Number: PHEH2008US01841

PATIENT
  Sex: Female

DRUGS (2)
  1. TOBI [Suspect]
     Dosage: UNK, QMO
  2. TOBI [Suspect]
     Dosage: EVERY OTHER MONTH

REACTIONS (3)
  - ANAEMIA [None]
  - ASTHENIA [None]
  - FATIGUE [None]
